FAERS Safety Report 9830194 (Version 1)
Quarter: 2014Q1

REPORT INFORMATION
  Report Type: Spontaneous
  Country: US (occurrence: US)
  Receive Date: 20140120
  Receipt Date: 20140120
  Transmission Date: 20141002
  Serious: Yes (Disabling)
  Sender: FDA-Public Use
  Company Number: US-ACTELION-A-NJ2014-93386

PATIENT
  Age: 73 Year
  Sex: Female

DRUGS (1)
  1. OPSUMIT [Suspect]
     Indication: PULMONARY ARTERIAL HYPERTENSION
     Dosage: 10 MG, UNK
     Route: 048
     Dates: start: 20131128, end: 20140102

REACTIONS (3)
  - Exercise tolerance decreased [Unknown]
  - Fatigue [Unknown]
  - Dyspnoea [Unknown]
